FAERS Safety Report 7957154-X (Version None)
Quarter: 2011Q4

REPORT INFORMATION
  Report Type: 
  Country: None (occurrence: None)
  Receive Date: 20111205
  Receipt Date: 20111128
  Transmission Date: 20120403
  Serious: Yes (Hospitalization, Other)
  Sender: FDA-Public Use
  Company Number: US-BAYER-2011-060859

PATIENT
  Age: 21 Year
  Sex: Female
  Weight: 52 kg

DRUGS (3)
  1. PRILOSEC [Concomitant]
  2. YAZ [Suspect]
     Indication: ORAL CONTRACEPTION
     Dosage: UNK
     Dates: start: 20060101, end: 20101201
  3. DROSPIRENONE AND ETHINYL ESTRADIOL [Suspect]
     Dosage: UNK
     Dates: start: 20100701, end: 20101201

REACTIONS (6)
  - CHOLECYSTECTOMY [None]
  - ABDOMINAL PAIN [None]
  - EATING DISORDER [None]
  - VOMITING [None]
  - CHOLECYSTITIS [None]
  - INJURY [None]
